FAERS Safety Report 13300085 (Version 2)
Quarter: 2017Q2

REPORT INFORMATION
  Report Type: Report from Study
  Country: GB (occurrence: GB)
  Receive Date: 20170306
  Receipt Date: 20170425
  Transmission Date: 20170830
  Serious: Yes (Other)
  Sender: FDA-Public Use
  Company Number: GB-ROCHE-1901808

PATIENT
  Age: 66 Year
  Sex: Female

DRUGS (3)
  1. XOLAIR [Suspect]
     Active Substance: OMALIZUMAB
     Indication: ASTHMA
     Dosage: 450 MG, UNK
     Route: 065
     Dates: start: 2014
  2. XOLAIR [Suspect]
     Active Substance: OMALIZUMAB
     Dosage: UNK
     Route: 065
     Dates: start: 20170227
  3. XOLAIR [Suspect]
     Active Substance: OMALIZUMAB
     Dosage: 600 MG, BIW
     Route: 058

REACTIONS (7)
  - Eye swelling [Recovered/Resolved]
  - Seasonal allergy [Recovered/Resolved]
  - Heart rate increased [Recovered/Resolved]
  - Ocular hyperaemia [Recovered/Resolved]
  - Blood pressure increased [Recovered/Resolved]
  - Eye haemorrhage [Recovered/Resolved]
  - Eye inflammation [Recovered/Resolved]

NARRATIVE: CASE EVENT DATE: 20170227
